FAERS Safety Report 19691406 (Version 1)
Quarter: 2021Q3

REPORT INFORMATION
  Report Type: Spontaneous
  Country: US (occurrence: US)
  Receive Date: 20210812
  Receipt Date: 20210812
  Transmission Date: 20211014
  Serious: Yes (Other)
  Sender: FDA-Public Use
  Company Number: None

PATIENT
  Age: 74 Year
  Sex: Male
  Weight: 125.1 kg

DRUGS (3)
  1. OXYCONTIN [Concomitant]
     Active Substance: OXYCODONE HYDROCHLORIDE
  2. LISINIPRIL [Concomitant]
     Active Substance: LISINOPRIL
  3. METFORMIN HCL ER 500MG COMMON BRAND: SEE DRUG MONOGRAPH [Suspect]
     Active Substance: METFORMIN HYDROCHLORIDE
     Indication: DIABETES MELLITUS
     Dosage: ?          QUANTITY:1 TABLET(S);?
     Route: 048
     Dates: start: 20210623, end: 20210810

REACTIONS (5)
  - Dermatitis [None]
  - Pruritus [None]
  - Paraesthesia [None]
  - Diabetic neuropathy [None]
  - Hypoaesthesia [None]

NARRATIVE: CASE EVENT DATE: 20210716
